FAERS Safety Report 25507749 (Version 1)
Quarter: 2025Q3

REPORT INFORMATION
  Report Type: Spontaneous
  Country: EU (occurrence: EU)
  Receive Date: 20250703
  Receipt Date: 20250703
  Transmission Date: 20251020
  Serious: Yes (Death, Other)
  Sender: MERCK SHARP & DOHME LLC
  Company Number: EU-009507513-2300982

PATIENT
  Age: 8 Decade
  Sex: Male
  Weight: 58 kg

DRUGS (10)
  1. PEMBROLIZUMAB [Suspect]
     Active Substance: PEMBROLIZUMAB
     Indication: Clear cell renal cell carcinoma
  2. METFORMIN [Concomitant]
     Active Substance: METFORMIN HYDROCHLORIDE
  3. AMLODIPINE [Concomitant]
     Active Substance: AMLODIPINE BESYLATE
  4. INDAPAMIDE\PERINDOPRIL [Concomitant]
     Active Substance: INDAPAMIDE\PERINDOPRIL
  5. ASPIRIN [Concomitant]
     Active Substance: ASPIRIN
  6. DUTASTERIDE [Concomitant]
     Active Substance: DUTASTERIDE
  7. afluzosin [Concomitant]
  8. LACTULOSE [Concomitant]
     Active Substance: LACTULOSE
  9. SODIUM PICOSULFATE [Concomitant]
     Active Substance: SODIUM PICOSULFATE
  10. AXITINIB [Concomitant]
     Active Substance: AXITINIB
     Indication: Clear cell renal cell carcinoma

REACTIONS (5)
  - Cardio-respiratory arrest [Fatal]
  - Left ventricular dysfunction [Not Recovered/Not Resolved]
  - Myopathy toxic [Not Recovered/Not Resolved]
  - Polymyositis [Not Recovered/Not Resolved]
  - Immune-mediated myocarditis [Not Recovered/Not Resolved]
